FAERS Safety Report 16337126 (Version 1)
Quarter: 2019Q2

REPORT INFORMATION
  Report Type: Spontaneous
  Country: US (occurrence: US)
  Receive Date: 20190521
  Receipt Date: 20190521
  Transmission Date: 20190711
  Serious: No
  Sender: FDA-Public Use
  Company Number: US-PFIZER INC-2019211624

PATIENT
  Age: 67 Year
  Sex: Female
  Weight: 61.23 kg

DRUGS (3)
  1. NORPACE CR [Suspect]
     Active Substance: DISOPYRAMIDE PHOSPHATE
     Indication: HYPERTROPHIC CARDIOMYOPATHY
     Dosage: 150 MG, 2X/DAY (150MG MODIFIED-RELEASE CAPSULE TAKEN BY MOUTH TWICE DAILY)
     Route: 048
     Dates: start: 20190413
  2. CARTIA XT [Concomitant]
     Active Substance: DILTIAZEM HYDROCHLORIDE
     Indication: HYPERTROPHIC CARDIOMYOPATHY
     Dosage: UNK UNK, DAILY (1 TAKEN BY MOUTH DAILY )
     Route: 048
     Dates: end: 20190413
  3. ATENOLOL. [Concomitant]
     Active Substance: ATENOLOL
     Indication: HYPERTROPHIC CARDIOMYOPATHY
     Dosage: 25 MG, 1X/DAY
     Route: 048

REACTIONS (2)
  - Off label use [Unknown]
  - Drug effective for unapproved indication [Unknown]

NARRATIVE: CASE EVENT DATE: 20190413
